FAERS Safety Report 21396135 (Version 1)
Quarter: 2022Q3

REPORT INFORMATION
  Report Type: Spontaneous
  Country: US (occurrence: None)
  Receive Date: 20220929
  Receipt Date: 20220929
  Transmission Date: 20221027
  Serious: No
  Sender: FDA-Public Use
  Company Number: None

PATIENT
  Age: 60 Year
  Sex: Male
  Weight: 101.25 kg

DRUGS (1)
  1. VUITY [Suspect]
     Active Substance: PILOCARPINE HYDROCHLORIDE
     Indication: Visual impairment
     Dosage: OTHER QUANTITY : 1 DROP(S);?FREQUENCY : DAILY;?
     Route: 047
     Dates: start: 20220928, end: 20220928

REACTIONS (8)
  - Headache [None]
  - Nausea [None]
  - Eye pain [None]
  - Eye irritation [None]
  - Vomiting [None]
  - Dizziness [None]
  - Tinnitus [None]
  - Application site irritation [None]

NARRATIVE: CASE EVENT DATE: 20220928
